FAERS Safety Report 23371935 (Version 1)
Quarter: 2024Q1

REPORT INFORMATION
  Report Type: Spontaneous
  Country: US (occurrence: None)
  Receive Date: 20240105
  Receipt Date: 20240105
  Transmission Date: 20240410
  Serious: No
  Sender: FDA-Public Use
  Company Number: None

PATIENT

DRUGS (3)
  1. MANNITOL [Suspect]
     Active Substance: MANNITOL
  2. OSMITROL [Suspect]
     Active Substance: MANNITOL
  3. SODIUM CHLORIDE [Suspect]
     Active Substance: SODIUM CHLORIDE

REACTIONS (4)
  - Wrong product stored [None]
  - Product label confusion [None]
  - Product packaging confusion [None]
  - Drug monitoring procedure not performed [None]
